FAERS Safety Report 8531240-8 (Version None)
Quarter: 2012Q3

REPORT INFORMATION
  Report Type: 
  Country: None (occurrence: None)
  Receive Date: 20120723
  Receipt Date: 20120713
  Transmission Date: 20120928
  Serious: Yes (Life-Threatening)
  Sender: FDA-Public Use
  Company Number: NO-PFIZER INC-2012175830

PATIENT
  Age: 64 Year
  Sex: Female

DRUGS (3)
  1. RAMIPRIL [Suspect]
     Dosage: 10 MG, DAILY
     Route: 048
  2. ADALAT [Concomitant]
     Dosage: UNK
  3. RAMIPRIL [Suspect]
     Indication: HYPERTENSION
     Dosage: 5 MG, DAILY
     Route: 048
     Dates: start: 20090101

REACTIONS (4)
  - COUGH [None]
  - SINUS DISORDER [None]
  - DYSPNOEA AT REST [None]
  - PHARYNGEAL OEDEMA [None]
